FAERS Safety Report 15840299 (Version 1)
Quarter: 2019Q1

REPORT INFORMATION
  Report Type: Spontaneous
  Country: US (occurrence: US)
  Receive Date: 20190117
  Receipt Date: 20190117
  Transmission Date: 20190417
  Serious: Yes (Other)
  Sender: FDA-Public Use
  Company Number: US-BAXTER-2019BAX001039

PATIENT
  Age: 4 Year
  Sex: Male

DRUGS (3)
  1. 3% SODIUM CHLORIDE INJECTION [Suspect]
     Active Substance: SODIUM CHLORIDE
     Indication: PRODUCT USED FOR UNKNOWN INDICATION
     Route: 065
  2. CIPROFLOXACIN. [Concomitant]
     Active Substance: CIPROFLOXACIN
     Indication: DRUG THERAPY
     Dosage: REACTION TO CIPROFLOXACIN: DRUG HYPERSENSITIVITY
     Route: 065
  3. KITABIS PAK [Suspect]
     Active Substance: TOBRAMYCIN
     Indication: CYSTIC FIBROSIS
     Dosage: 300MG/5ML, VIA PARI LC PLUS (MEDICAL DEVICE) NEBULIZED
     Route: 055
     Dates: start: 20181025

REACTIONS (2)
  - Haemorrhage [Unknown]
  - Product dose omission [Unknown]

NARRATIVE: CASE EVENT DATE: 20181204
